FAERS Safety Report 4538484-0 (Version None)
Quarter: 2004Q4

REPORT INFORMATION
  Report Type: 
  Country: None (occurrence: None)
  Receive Date: 20041223
  Receipt Date: 20041223
  Transmission Date: 20050328
  Serious: Yes (Death)
  Sender: FDA-Public Use
  Company Number: None

PATIENT
  Age: 49 Year
  Sex: Male
  Weight: 57.7 kg

DRUGS (26)
  1. CLOZAPINE [Suspect]
     Dosage: SEE IMAGE
     Dates: start: 20041103
  2. CLOZAPINE [Suspect]
     Dosage: SEE IMAGE
     Dates: start: 20041104
  3. CLOZAPINE [Suspect]
     Dosage: SEE IMAGE
     Dates: start: 20041105
  4. CLOZAPINE [Suspect]
     Dosage: SEE IMAGE
     Dates: start: 20041106
  5. CLOZAPINE [Suspect]
     Dosage: SEE IMAGE
     Dates: start: 20041107
  6. CLOZAPINE [Suspect]
     Dosage: SEE IMAGE
     Dates: start: 20041111
  7. CLOZAPINE [Suspect]
     Dosage: SEE IMAGE
     Dates: start: 20041113
  8. CLOZAPINE [Suspect]
     Dosage: SEE IMAGE
     Dates: start: 20041114
  9. CLOZAPINE [Suspect]
     Dosage: SEE IMAGE
     Dates: start: 20041116
  10. ABILIFY [Suspect]
     Dosage: 15 MG /DAY
     Dates: start: 20041103
  11. ABILIFY [Suspect]
     Dosage: 15 MG /DAY
     Dates: start: 20041105
  12. ABILIFY [Suspect]
     Dosage: 15 MG /DAY
     Dates: start: 20041111
  13. ABILIFY [Suspect]
     Dosage: 15 MG /DAY
     Dates: start: 20041113
  14. ABILIFY [Suspect]
     Dosage: 15 MG /DAY
     Dates: start: 20041114
  15. ABILIFY [Suspect]
     Dosage: 15 MG /DAY
     Dates: start: 20041115
  16. ABILIFY [Suspect]
     Dosage: 15 MG /DAY
     Dates: start: 20041116
  17. HALDOL [Suspect]
     Dates: start: 20041107
  18. HALDOL [Suspect]
     Dates: start: 20041108
  19. HALDOL [Suspect]
     Dates: start: 20041109
  20. HALDOL [Suspect]
     Dates: start: 20041110
  21. HALDOL [Suspect]
     Dates: start: 20041111
  22. GEODON [Suspect]
     Dosage: SEE IMAGE
     Dates: start: 20041114
  23. GEODON [Suspect]
     Dosage: SEE IMAGE
     Dates: start: 20041117
  24. GEODON [Suspect]
     Dosage: SEE IMAGE
     Dates: start: 20041118
  25. GEODON [Suspect]
     Dosage: SEE IMAGE
     Dates: start: 20041119
  26. GEODON [Suspect]
     Dosage: SEE IMAGE
     Dates: start: 20041120

REACTIONS (12)
  - AGITATION [None]
  - BLOOD CREATININE INCREASED [None]
  - BLOOD GASES ABNORMAL [None]
  - CHOLINERGIC SYNDROME [None]
  - DIALYSIS [None]
  - DIARRHOEA [None]
  - ELECTROLYTE IMBALANCE [None]
  - HALLUCINATION [None]
  - INCOHERENT [None]
  - LETHARGY [None]
  - NEUROLEPTIC MALIGNANT SYNDROME [None]
  - URINARY RETENTION [None]
